FAERS Safety Report 6910094-7 (Version None)
Quarter: 2010Q3

REPORT INFORMATION
  Report Type: 
  Country: None (occurrence: None)
  Receive Date: 20100806
  Receipt Date: 20100726
  Transmission Date: 20110219
  Serious: Yes (Other)
  Sender: FDA-Public Use
  Company Number: US-JNJFOC-20100708570

PATIENT

DRUGS (1)
  1. ORTHOCLONE OKT3 [Suspect]
     Indication: PRODUCT USED FOR UNKNOWN INDICATION
     Route: 065

REACTIONS (3)
  - CSF PRESSURE INCREASED [None]
  - HEMIPARESIS [None]
  - PAPILLOEDEMA [None]
